FAERS Safety Report 8519665 (Version 2)
Quarter: 2012Q4

REPORT INFORMATION
  Report Type: 
  Country: US (occurrence: US)
  Receive Date: 20120418
  Receipt Date: 20121010
  Transmission Date: 20130627
  Serious: No
  Sender: FDA-Public Use
  Company Number: US-ASTRAZENECA-2011SE51107

PATIENT
  Age: 80 Year
  Sex: Female

DRUGS (3)
  1. NEXIUM [Suspect]
     Indication: ULCER
     Route: 048
  2. NEXIUM [Suspect]
     Indication: ULCER
     Route: 048
  3. OMEPRAZOLE [Suspect]
     Route: 048

REACTIONS (8)
  - Adverse event [Unknown]
  - Pain [Unknown]
  - Gastrooesophageal reflux disease [Unknown]
  - Faeces discoloured [Unknown]
  - Gastric ulcer haemorrhage [Unknown]
  - Haemorrhage [Unknown]
  - Drug ineffective [Unknown]
  - Intentional drug misuse [Unknown]
